FAERS Safety Report 13073200 (Version 1)
Quarter: 2016Q4

REPORT INFORMATION
  Report Type: Spontaneous
  Country: FR (occurrence: FR)
  Receive Date: 20161229
  Receipt Date: 20161229
  Transmission Date: 20170207
  Serious: Yes (Other)
  Sender: FDA-Public Use
  Company Number: FR-ABBVIE-16P-056-1825346-00

PATIENT
  Sex: Female

DRUGS (1)
  1. DEPAKINE [Suspect]
     Active Substance: VALPROATE SODIUM
     Indication: JUVENILE MYOCLONIC EPILEPSY
     Route: 048
     Dates: start: 201409, end: 201510

REACTIONS (2)
  - Weight increased [Unknown]
  - Abnormal weight gain [Unknown]
